FAERS Safety Report 9234500 (Version 1)
Quarter: 2013Q2

REPORT INFORMATION
  Report Type: Spontaneous
  Country: US (occurrence: US)
  Receive Date: 20130416
  Receipt Date: 20130416
  Transmission Date: 20140414
  Serious: No
  Sender: FDA-Public Use
  Company Number: US-BANPHARM-20120258

PATIENT
  Age: 84 Year
  Sex: Male
  Weight: 95.3 kg

DRUGS (7)
  1. ALEVE LIQUID GELS 220 MG [Suspect]
     Dosage: 1DF, ONCE,
     Route: 048
     Dates: start: 20121009
  2. MIDODRINE HCL [Concomitant]
  3. MULTIVITAMIN [Concomitant]
  4. FISH OIL [Concomitant]
  5. VITAMIN D3 [Concomitant]
  6. BAYER? 81MG ENTERIC ASPIRIN [Concomitant]
     Dosage: 1 TABLET ONCE DAILY
     Route: 048
     Dates: start: 2004
  7. TESTOSTERONE INJECTION [Concomitant]

REACTIONS (1)
  - Prostatic pain [Recovered/Resolved]
